FAERS Safety Report 7969882-0 (Version None)
Quarter: 2011Q4

REPORT INFORMATION
  Report Type: 
  Country: None (occurrence: None)
  Receive Date: 20111212
  Receipt Date: 20111130
  Transmission Date: 20120403
  Serious: Yes (Other)
  Sender: FDA-Public Use
  Company Number: FR-PFIZER INC-2011282510

PATIENT
  Age: 91 Year
  Sex: Female

DRUGS (9)
  1. CALCIDOSE VITAMINE D [Concomitant]
  2. KEPPRA [Suspect]
     Indication: EPILEPSY
     Dosage: 0.5 DF, 2X/DAY
     Route: 048
     Dates: start: 20111011, end: 20111023
  3. RED BLOOD CELLS [Concomitant]
     Dosage: UNK
     Route: 042
     Dates: start: 20111021, end: 20111021
  4. MIDAZOLAM HCL [Concomitant]
     Dosage: 2.5 MG, SINGLE
     Route: 058
     Dates: start: 20111021, end: 20111021
  5. FLUCONAZOLE [Suspect]
     Indication: FUNGAL INFECTION
     Dosage: UNK
     Route: 048
     Dates: start: 20111018, end: 20111023
  6. NEXIUM [Concomitant]
     Dosage: 40 MG PER DAY
  7. POTASSIUM CHLORIDE [Concomitant]
  8. BACTRIM [Suspect]
     Indication: INFECTION
     Dosage: 1 DF, 2X/DAY
     Route: 048
     Dates: start: 20111014, end: 20111021
  9. ENTOCORT EC [Concomitant]
     Dosage: 3 MG PER DAY

REACTIONS (7)
  - TACHYCARDIA [None]
  - RENAL FAILURE ACUTE [None]
  - HYPONATRAEMIA [None]
  - HYPERTENSION [None]
  - TACHYPNOEA [None]
  - ERYTHROSIS [None]
  - ANAPHYLACTIC REACTION [None]
